FAERS Safety Report 17300665 (Version 2)
Quarter: 2020Q1

REPORT INFORMATION
  Report Type: Spontaneous
  Country: US (occurrence: US)
  Receive Date: 20200122
  Receipt Date: 20200204
  Transmission Date: 20200409
  Serious: Yes (Hospitalization)
  Sender: FDA-Public Use
  Company Number: US-ALLERGAN-2001980US

PATIENT
  Sex: Female

DRUGS (1)
  1. CYCLOSPORINE UNK [Suspect]
     Active Substance: CYCLOSPORINE
     Indication: PRODUCT USED FOR UNKNOWN INDICATION

REACTIONS (4)
  - Swelling [Unknown]
  - Drug hypersensitivity [Unknown]
  - Adverse event [Recovered/Resolved]
  - Oedema [Unknown]
